FAERS Safety Report 16283415 (Version 1)
Quarter: 2019Q2

REPORT INFORMATION
  Report Type: Spontaneous
  Country: US (occurrence: US)
  Receive Date: 20190507
  Receipt Date: 20190507
  Transmission Date: 20190711
  Serious: Yes (Other)
  Sender: FDA-Public Use
  Company Number: US-SA-2017SA248489

PATIENT
  Age: 51 Year
  Sex: Female
  Weight: 52.1 kg

DRUGS (12)
  1. IRBESARTAN. [Concomitant]
     Active Substance: IRBESARTAN
  2. TAXOTERE [Suspect]
     Active Substance: DOCETAXEL
     Dosage: 119 MG,Q3W
     Route: 042
     Dates: start: 20060620, end: 20060620
  3. DOXORUBICIN [Concomitant]
     Active Substance: DOXORUBICIN
  4. ATORVASTATIN [Concomitant]
     Active Substance: ATORVASTATIN
  5. CYTOXAN [Concomitant]
     Active Substance: CYCLOPHOSPHAMIDE
  6. INSULIN [Concomitant]
     Active Substance: INSULIN NOS
  7. LANTUS [Concomitant]
     Active Substance: INSULIN GLARGINE
     Dosage: UNK
  8. COZAAR [Concomitant]
     Active Substance: LOSARTAN POTASSIUM
     Dosage: UNK
  9. TAXOTERE [Suspect]
     Active Substance: DOCETAXEL
     Indication: BREAST CANCER
     Dosage: 119 MG,Q3W
     Route: 042
     Dates: start: 20060306, end: 20060306
  10. NEOSAR [Concomitant]
     Active Substance: CYCLOPHOSPHAMIDE
  11. LOVASTATIN. [Concomitant]
     Active Substance: LOVASTATIN
     Dosage: UNK
  12. NOVOLOG [Concomitant]
     Active Substance: INSULIN ASPART

REACTIONS (2)
  - Psychological trauma [Unknown]
  - Alopecia [Recovering/Resolving]

NARRATIVE: CASE EVENT DATE: 200606
